FAERS Safety Report 5536067-7 (Version None)
Quarter: 2007Q4

REPORT INFORMATION
  Report Type: 
  Country: None (occurrence: None)
  Receive Date: 20071206
  Receipt Date: 20071129
  Transmission Date: 20080405
  Serious: Yes (Life-Threatening)
  Sender: FDA-Public Use
  Company Number: US-GENENTECH-252138

PATIENT
  Sex: Male
  Weight: 79 kg

DRUGS (16)
  1. BEVACIZUMAB [Suspect]
     Indication: OESOPHAGEAL CARCINOMA
     Dosage: 10 MG/M2, Q3W
     Route: 042
     Dates: start: 20070228
  2. CISPLATIN [Suspect]
     Indication: OESOPHAGEAL CARCINOMA
     Dosage: 25 MG/M2, DAY1+8/Q3W
     Route: 042
     Dates: start: 20070228
  3. DOCETAXEL [Suspect]
     Indication: OESOPHAGEAL CARCINOMA
     Dosage: 30 MG/M2, DAY1+8/Q3W
     Route: 042
     Dates: start: 20070228
  4. IRINOTECAN HCL [Suspect]
     Indication: OESOPHAGEAL CARCINOMA
     Dosage: 50 MG/M2, DAY1+8/Q3W
     Route: 042
     Dates: start: 20070228
  5. IRINOTECAN HCL [Suspect]
     Dosage: 37.5 MG/M2, DAY1+8/Q3W
     Route: 042
     Dates: start: 20071106
  6. ASPIRIN [Concomitant]
     Indication: DRUG USE FOR UNKNOWN INDICATION
  7. DECADRON [Concomitant]
     Indication: DRUG USE FOR UNKNOWN INDICATION
  8. DTO [Concomitant]
     Indication: DRUG USE FOR UNKNOWN INDICATION
  9. FERROUS SULFATE TAB [Concomitant]
     Indication: DRUG USE FOR UNKNOWN INDICATION
  10. IMODIUM ADVANCED [Concomitant]
     Indication: DRUG USE FOR UNKNOWN INDICATION
  11. LIPITOR [Concomitant]
     Indication: DRUG USE FOR UNKNOWN INDICATION
  12. LISINOPRIL [Concomitant]
     Indication: DRUG USE FOR UNKNOWN INDICATION
  13. PERIDEX [Concomitant]
     Indication: DRUG USE FOR UNKNOWN INDICATION
  14. PROTONIX [Concomitant]
     Indication: DRUG USE FOR UNKNOWN INDICATION
  15. SALINE NASAL SPRAY [Concomitant]
     Indication: DRUG USE FOR UNKNOWN INDICATION
  16. ZOFRAN [Concomitant]
     Indication: DRUG USE FOR UNKNOWN INDICATION

REACTIONS (4)
  - HEADACHE [None]
  - NASAL NECROSIS [None]
  - NASAL SEPTUM PERFORATION [None]
  - RHINORRHOEA [None]
